FAERS Safety Report 9885747 (Version 2)
Quarter: 2014Q1

REPORT INFORMATION
  Report Type: Spontaneous
  Country: IT (occurrence: IT)
  Receive Date: 20140210
  Receipt Date: 20140218
  Transmission Date: 20141002
  Serious: Yes (Hospitalization)
  Sender: FDA-Public Use
  Company Number: IT-TEVA-460136ISR

PATIENT
  Age: 70 Year
  Sex: Female
  Weight: 73 kg

DRUGS (3)
  1. FLUOROURACILE TEVA [Suspect]
     Indication: PANCREATIC CARCINOMA
     Dosage: 3200 MG/M2 DAILY;
     Route: 042
     Dates: start: 20140121, end: 20140121
  2. IRINOTECAN KABI [Interacting]
     Indication: PANCREATIC CARCINOMA
     Dosage: 240 MG/M2 DAILY;
     Route: 042
     Dates: start: 20140121, end: 20140121
  3. OXALIPLATINO ACCORD [Interacting]
     Indication: PANCREATIC CARCINOMA
     Dosage: 110 MILLIGRAM DAILY;
     Route: 042
     Dates: start: 20140121, end: 20140121

REACTIONS (4)
  - Drug interaction [Recovering/Resolving]
  - Asthenia [Recovering/Resolving]
  - Diarrhoea [Recovering/Resolving]
  - Tremor [Recovering/Resolving]
